FAERS Safety Report 5553687-4 (Version None)
Quarter: 2007Q4

REPORT INFORMATION
  Report Type: 
  Country: None (occurrence: None)
  Receive Date: 20071211
  Receipt Date: 20071205
  Transmission Date: 20080405
  Serious: Yes (Death)
  Sender: FDA-Public Use
  Company Number: SPV1-2007-05113

PATIENT
  Age: 17 Year
  Sex: Female

DRUGS (1)
  1. PENTASA [Suspect]
     Indication: CROHN'S DISEASE
     Dosage: 14, ONE DOSE, ORAL
     Route: 048

REACTIONS (3)
  - COMPLETED SUICIDE [None]
  - INTENTIONAL OVERDOSE [None]
  - SELF-MEDICATION [None]
